FAERS Safety Report 18173102 (Version 1)
Quarter: 2020Q3

REPORT INFORMATION
  Report Type: Spontaneous
  Country: ES (occurrence: ES)
  Receive Date: 20200819
  Receipt Date: 20200819
  Transmission Date: 20201103
  Serious: Yes (Other)
  Sender: FDA-Public Use
  Company Number: NVSC2020ES226323

PATIENT
  Age: 69 Year
  Sex: Female

DRUGS (4)
  1. PROLIA [Concomitant]
     Active Substance: DENOSUMAB
     Indication: OSTEOPOROSIS
     Dosage: 1 DF
     Route: 058
     Dates: start: 20200131
  2. ATORVASTATIN [Suspect]
     Active Substance: ATORVASTATIN
     Indication: HYPERLIPIDAEMIA
     Dosage: 20 MG, QD
     Route: 048
     Dates: start: 20200130, end: 20200703
  3. CALCIFEDIOL [Concomitant]
     Active Substance: CALCIFEDIOL
     Indication: OSTEOPOROSIS
     Dosage: 0.26 MG
     Route: 048
     Dates: start: 20200130
  4. CALCIUM [Concomitant]
     Active Substance: CALCIUM
     Indication: OSTEOPOROSIS
     Dosage: 1 DF, Q24H
     Route: 048
     Dates: start: 20200131

REACTIONS (5)
  - Cell death [Unknown]
  - Pruritus [Unknown]
  - Hypervitaminosis D [Unknown]
  - Hypocalcaemia [Unknown]
  - Cholestasis [Unknown]

NARRATIVE: CASE EVENT DATE: 20200720
